FAERS Safety Report 5321504-3 (Version None)
Quarter: 2007Q1

REPORT INFORMATION
  Report Type: 
  Country: None (occurrence: None)
  Receive Date: 20070215
  Receipt Date: 20061127
  Transmission Date: 20070707
  Serious: No
  Sender: FDA-Public Use
  Company Number: 200616626BWH

PATIENT
  Sex: Male

DRUGS (4)
  1. NEXAVAR [Suspect]
     Indication: DRUG USE FOR UNKNOWN INDICATION
     Dosage: ORAL
     Route: 048
  2. CALCIUM CHANNEL BLOCKER [Concomitant]
  3. BETA BLOCKER [Concomitant]
  4. DIURETIC [Concomitant]

REACTIONS (1)
  - HYPERTENSION [None]
